FAERS Safety Report 25074792 (Version 3)
Quarter: 2025Q2

REPORT INFORMATION
  Report Type: Spontaneous
  Country: HR (occurrence: HR)
  Receive Date: 20250313
  Receipt Date: 20250404
  Transmission Date: 20250716
  Serious: Yes (Hospitalization, Other)
  Sender: BOEHRINGER INGELHEIM
  Company Number: HR-BoehringerIngelheim-2025-BI-014340

PATIENT
  Age: 75 Year
  Sex: Female
  Weight: 66 kg

DRUGS (5)
  1. DABIGATRAN [Suspect]
     Active Substance: DABIGATRAN
     Indication: Atrial fibrillation
  2. ALPRAZOLAM [Concomitant]
     Active Substance: ALPRAZOLAM
     Indication: Product used for unknown indication
  3. BISOPROLOL [Concomitant]
     Active Substance: BISOPROLOL
     Indication: Product used for unknown indication
  4. paroksetin [Concomitant]
     Indication: Product used for unknown indication
  5. ramipril+amlodipin [Concomitant]
     Indication: Product used for unknown indication
     Dosage: 1X10710MG

REACTIONS (17)
  - Haematuria [Unknown]
  - Decreased appetite [Unknown]
  - Pyrexia [Unknown]
  - Erythema [Unknown]
  - Pain in extremity [Unknown]
  - Anticoagulant-related nephropathy [Unknown]
  - Renal impairment [Recovering/Resolving]
  - Cardiac failure [Unknown]
  - Renal tubular injury [Recovering/Resolving]
  - Red blood cell abnormality [Recovering/Resolving]
  - Renal haemorrhage [Recovering/Resolving]
  - Nephropathy [Recovering/Resolving]
  - Asthenia [Unknown]
  - Haemoptysis [Unknown]
  - Oedema peripheral [Unknown]
  - Erysipelas [Unknown]
  - Weight decreased [Unknown]

NARRATIVE: CASE EVENT DATE: 20210701
